FAERS Safety Report 8274936-8 (Version None)
Quarter: 2012Q2

REPORT INFORMATION
  Report Type: 
  Country: None (occurrence: None)
  Receive Date: 20120411
  Receipt Date: 20120213
  Transmission Date: 20120825
  Serious: Yes (Other)
  Sender: FDA-Public Use
  Company Number: US-JNJCP-30000090814

PATIENT
  Age: 34 Year
  Sex: Female
  Weight: 66 kg

DRUGS (3)
  1. C+C ADVANTAGE ACNE CONTROL CLEANSER 4 OZ USA 381370023425 [Suspect]
     Indication: ACNE
     Dosage: ONE APPLICATION, ONCE
     Route: 061
     Dates: start: 20120209, end: 20120209
  2. C+C ADVANTAGE FAST CLR SPOT TREAT 0.5 OZ USA 381370023425 [Suspect]
     Indication: ACNE
     Dosage: ONE APPLICATION, ONCE
     Route: 061
     Dates: start: 20120209, end: 20120209
  3. C+C ADVANTAGE ACNE CONTROL MOIST 2 OZ USA 381370023425 [Suspect]
     Indication: ACNE
     Dosage: ONE APPLICATION, ONCE
     Route: 061
     Dates: start: 20120209, end: 20120209

REACTIONS (2)
  - HYPERSENSITIVITY [None]
  - ACNE COSMETICA [None]
